FAERS Safety Report 9852168 (Version 1)
Quarter: 2014Q1

REPORT INFORMATION
  Report Type: Spontaneous
  Country: US (occurrence: US)
  Receive Date: 20140129
  Receipt Date: 20140129
  Transmission Date: 20141002
  Serious: Yes (Other)
  Sender: FDA-Public Use
  Company Number: US-BRACCO-009041

PATIENT
  Age: 20 Year
  Sex: Female

DRUGS (5)
  1. MULTIHANCE [Suspect]
     Indication: NUCLEAR MAGNETIC RESONANCE IMAGING BRAIN
     Route: 042
     Dates: start: 20130110, end: 20130110
  2. MULTIHANCE [Suspect]
     Indication: CONVULSION
     Route: 042
     Dates: start: 20130110, end: 20130110
  3. MULTIHANCE [Suspect]
     Indication: DIZZINESS
     Route: 042
     Dates: start: 20130110, end: 20130110
  4. MULTIHANCE [Suspect]
     Indication: DYSARTHRIA
     Route: 042
     Dates: start: 20130110, end: 20130110
  5. MULTIHANCE [Suspect]
     Indication: COORDINATION ABNORMAL
     Route: 042
     Dates: start: 20130110, end: 20130110

REACTIONS (1)
  - Convulsion [Recovered/Resolved]
